FAERS Safety Report 5326576-8 (Version None)
Quarter: 2007Q2

REPORT INFORMATION
  Report Type: 
  Country: None (occurrence: None)
  Receive Date: 20070516
  Receipt Date: 20070511
  Transmission Date: 20071010
  Serious: Yes (Hospitalization)
  Sender: FDA-Public Use
  Company Number: A0628087A

PATIENT
  Age: 55 Year
  Sex: Female

DRUGS (2)
  1. GOODY'S PM POWDER [Suspect]
     Indication: ARTHRITIS
     Dosage: 1Z AT NIGHT
     Route: 048
     Dates: start: 20061001, end: 20060101
  2. NO CONCURRENT MEDICATION [Concomitant]

REACTIONS (12)
  - COUGH [None]
  - DEHYDRATION [None]
  - DRY THROAT [None]
  - DYSPHONIA [None]
  - EATING DISORDER [None]
  - HAEMATOCHEZIA [None]
  - HAEMOPTYSIS [None]
  - PHARYNGEAL HAEMORRHAGE [None]
  - PHARYNGOLARYNGEAL PAIN [None]
  - SNORING [None]
  - THROAT IRRITATION [None]
  - THROAT TIGHTNESS [None]
